FAERS Safety Report 9904728 (Version 3)
Quarter: 2014Q1

REPORT INFORMATION
  Report Type: Spontaneous
  Country: JP (occurrence: JP)
  Receive Date: 20140218
  Receipt Date: 20140228
  Transmission Date: 20141002
  Serious: Yes (Hospitalization)
  Sender: FDA-Public Use
  Company Number: JP-ASTRAZENECA-2013SE92483

PATIENT
  Age: 28446 Day
  Sex: Male
  Weight: 54 kg

DRUGS (3)
  1. CASODEX [Suspect]
     Indication: PROSTATE CANCER
     Route: 048
     Dates: start: 20131024, end: 20131217
  2. ZOLADEX [Suspect]
     Indication: PROSTATE CANCER
     Route: 058
     Dates: start: 20131105
  3. ZOLADEX [Suspect]
     Indication: PROSTATE CANCER
     Dosage: ZOLADEX LA, 10.8 MG EVERY 12 WEEKS
     Route: 058
     Dates: start: 20131203

REACTIONS (1)
  - Haemolytic anaemia [Recovered/Resolved]
